FAERS Safety Report 4342898-1 (Version None)
Quarter: 2004Q2

REPORT INFORMATION
  Report Type: 
  Country: None (occurrence: None)
  Receive Date: 20040416
  Receipt Date: 20040402
  Transmission Date: 20050107
  Serious: Yes (Death, Other)
  Sender: FDA-Public Use
  Company Number: USA-2003-0008597

PATIENT
  Sex: Male
  Weight: 107 kg

DRUGS (4)
  1. OXYCONTIN [Suspect]
     Indication: PAIN
     Dosage: 40 MG, BID, ORAL
     Route: 048
     Dates: start: 20010329, end: 20010523
  2. ELAVIL [Concomitant]
  3. FLEXERIL [Concomitant]
  4. NAPROXEN [Concomitant]

REACTIONS (5)
  - ANXIETY [None]
  - DEPRESSION [None]
  - DRUG ADDICT [None]
  - DRUG WITHDRAWAL SYNDROME [None]
  - PAIN [None]
